FAERS Safety Report 8554967-0 (Version None)
Quarter: 2012Q3

REPORT INFORMATION
  Report Type: 
  Country: None (occurrence: None)
  Receive Date: 20120731
  Receipt Date: 20120724
  Transmission Date: 20120928
  Serious: Yes (Hospitalization, Other)
  Sender: FDA-Public Use
  Company Number: FR-PFIZER INC-2012179511

PATIENT
  Age: 48 Year
  Sex: Female
  Weight: 55 kg

DRUGS (9)
  1. MORPHINE SULFATE [Concomitant]
     Indication: ABDOMINAL PAIN
     Dosage: 2X/DAY
     Route: 048
     Dates: start: 20120701
  2. PRIMPERAN TAB [Concomitant]
     Indication: NAUSEA
     Dosage: AS NEEDED
     Route: 048
     Dates: start: 20120601
  3. ATARAX [Concomitant]
     Indication: INSOMNIA
     Dosage: 1 DF, AS NEEDED
     Route: 048
     Dates: start: 20120501
  4. AXITINIB [Suspect]
     Indication: NEOPLASM MALIGNANT
     Dosage: 5 MG, 2X/DAY
     Route: 048
     Dates: start: 20120510, end: 20120723
  5. LEVONORGESTREL + ETHINYL ESTRADIOL [Concomitant]
     Indication: CONTRACEPTION
     Dosage: 1 DF, 1X/DAY
     Route: 048
     Dates: start: 19920101
  6. THIAMINE HYDROCHLORIDE [Concomitant]
     Indication: MUSCLE SPASMS
     Dosage: AS NEEDED
     Route: 048
     Dates: start: 20111001
  7. MAGNESIUM W/VITAMIN B6 [Concomitant]
     Indication: MUSCLE SPASMS
     Dosage: 2 DF, 1X/DAY
     Route: 048
     Dates: start: 20100101
  8. TEMAZEPAM [Concomitant]
     Indication: INTERVERTEBRAL DISC PROTRUSION
     Dosage: 1 DF, 1X/DAY
     Route: 048
     Dates: start: 19970101
  9. PRIMPERAN TAB [Concomitant]
     Indication: VOMITING

REACTIONS (1)
  - ANGINA PECTORIS [None]
